FAERS Safety Report 4940667-2 (Version None)
Quarter: 2006Q1

REPORT INFORMATION
  Report Type: 
  Country: None (occurrence: None)
  Receive Date: 20060127
  Receipt Date: 20051215
  Transmission Date: 20060701
  Serious: Yes (Other)
  Sender: FDA-Public Use
  Company Number: 2005169786

PATIENT
  Sex: Male

DRUGS (2)
  1. LYRICA [Suspect]
     Indication: NEUROPATHY
     Dosage: 300 MG (1 IN 1 D)
     Dates: start: 20050101
  2. OXYCODONE (OXYCODONE) [Concomitant]

REACTIONS (1)
  - DRUG INEFFECTIVE [None]
